FAERS Safety Report 21062793 (Version 8)
Quarter: 2022Q3

REPORT INFORMATION
  Report Type: Report from Study
  Country: DE (occurrence: DE)
  Receive Date: 20220711
  Receipt Date: 20220912
  Transmission Date: 20221027
  Serious: Yes (Hospitalization, Other)
  Sender: FDA-Public Use
  Company Number: DE-INSMED, INC.-2022-01655-DE

PATIENT
  Age: 76 Year
  Sex: Female

DRUGS (4)
  1. ARIKAYCE [Suspect]
     Active Substance: AMIKACIN
     Indication: Mycobacterial infection
     Dosage: 590 MILLIGRAM, QD
     Route: 055
     Dates: start: 20220630, end: 20220706
  2. ARIKAYCE [Suspect]
     Active Substance: AMIKACIN
     Dosage: 590 MILLIGRAM, EVERY THREE DAYS
     Route: 055
     Dates: start: 20220711, end: 20220731
  3. ARIKAYCE [Suspect]
     Active Substance: AMIKACIN
     Dosage: 590 MILLIGRAM, QD
     Route: 055
     Dates: start: 20220810, end: 202208
  4. ARIKAYCE [Suspect]
     Active Substance: AMIKACIN
     Dosage: 590 MILLIGRAM, QOD
     Route: 055
     Dates: start: 20220813

REACTIONS (14)
  - Hospitalisation [Unknown]
  - Hospitalisation [Unknown]
  - Lung operation [Unknown]
  - Chromaturia [Recovered/Resolved]
  - Feeling hot [Unknown]
  - Hot flush [Recovered/Resolved]
  - Erythema [Unknown]
  - Paraesthesia [Unknown]
  - Salivary hypersecretion [Recovered/Resolved]
  - Dysgeusia [Recovering/Resolving]
  - Cough [Recovered/Resolved]
  - Dizziness [Recovered/Resolved]
  - Dysphonia [Recovered/Resolved]
  - Off label use [Unknown]

NARRATIVE: CASE EVENT DATE: 20220101
